FAERS Safety Report 5553712-0 (Version None)
Quarter: 2007Q4

REPORT INFORMATION
  Report Type: 
  Country: None (occurrence: None)
  Receive Date: 20071213
  Receipt Date: 20071210
  Transmission Date: 20080405
  Serious: Yes (Other)
  Sender: FDA-Public Use
  Company Number: PHRM2007FR02711

PATIENT
  Age: 78 Year
  Weight: 55 kg

DRUGS (1)
  1. ZOMETA [Suspect]
     Dosage: UNK, UNK
     Route: 042
     Dates: start: 20021214, end: 20070109

REACTIONS (1)
  - OSTEONECROSIS [None]
